FAERS Safety Report 17539154 (Version 2)
Quarter: 2020Q1

REPORT INFORMATION
  Report Type: Spontaneous
  Country: US (occurrence: US)
  Receive Date: 20200313
  Receipt Date: 20200316
  Transmission Date: 20200409
  Serious: No
  Sender: FDA-Public Use
  Company Number: US-EMD SERONO-7139594

PATIENT
  Sex: Female

DRUGS (3)
  1. REBIF [Suspect]
     Active Substance: INTERFERON BETA-1A
     Route: 058
     Dates: start: 20130125
  2. REBIF [Suspect]
     Active Substance: INTERFERON BETA-1A
     Route: 058
     Dates: start: 20090511, end: 20120921
  3. REBIF [Suspect]
     Active Substance: INTERFERON BETA-1A
     Indication: PRODUCT USED FOR UNKNOWN INDICATION
     Route: 058
     Dates: start: 2008

REACTIONS (6)
  - Feeling of body temperature change [Unknown]
  - Injection site indentation [Not Recovered/Not Resolved]
  - Nausea [Unknown]
  - Injection site erythema [Unknown]
  - Influenza like illness [Unknown]
  - Thyroid hormones decreased [Unknown]

NARRATIVE: CASE EVENT DATE: 2011
